FAERS Safety Report 12146092 (Version 1)
Quarter: 2016Q1

REPORT INFORMATION
  Report Type: Spontaneous
  Country: US (occurrence: US)
  Receive Date: 20160304
  Receipt Date: 20160304
  Transmission Date: 20160526
  Serious: No
  Sender: FDA-Public Use
  Company Number: US-PERRIGO-15US007638

PATIENT
  Age: 28 Year
  Sex: Male
  Weight: 90.7 kg

DRUGS (2)
  1. NAPROXEN SODIUM 220 MG 368 [Suspect]
     Active Substance: NAPROXEN SODIUM
     Dosage: 220 MG TO 440 MG, SINGLE
     Route: 048
     Dates: start: 20150720, end: 20150720
  2. NAPROXEN SODIUM 220 MG 368 [Suspect]
     Active Substance: NAPROXEN SODIUM
     Indication: HEADACHE
     Dosage: 220 MG TO 440 MG, QD TO BID, PRN
     Route: 048
     Dates: start: 2014, end: 20150719

REACTIONS (4)
  - Vomiting [Recovered/Resolved]
  - Incorrect dose administered [Recovered/Resolved]
  - Dehydration [Recovered/Resolved]
  - Nausea [Recovered/Resolved]

NARRATIVE: CASE EVENT DATE: 2014
